FAERS Safety Report 25278065 (Version 2)
Quarter: 2025Q2

REPORT INFORMATION
  Report Type: Spontaneous
  Country: PL (occurrence: PL)
  Receive Date: 20250507
  Receipt Date: 20250519
  Transmission Date: 20250717
  Serious: Yes (Death)
  Sender: PFIZER
  Company Number: PL-POLPHARMA-PPH6901712

PATIENT
  Age: 46 Year
  Sex: Male

DRUGS (2)
  1. FLUCONAZOLE [Suspect]
     Active Substance: FLUCONAZOLE
     Indication: Candida infection
  2. BISEPTOL [Suspect]
     Active Substance: SULFAMETHOXAZOLE\TRIMETHOPRIM
     Indication: Stenotrophomonas infection

REACTIONS (1)
  - Drug ineffective [Fatal]
